FAERS Safety Report 20323691 (Version 4)
Quarter: 2022Q1

REPORT INFORMATION
  Report Type: Spontaneous
  Country: FR (occurrence: None)
  Receive Date: 20220111
  Receipt Date: 20220317
  Transmission Date: 20220423
  Serious: Yes (Other)
  Sender: FDA-Public Use
  Company Number: 2021A908574

PATIENT
  Age: 22879 Day
  Sex: Male
  Weight: 100 kg

DRUGS (3)
  1. BYDUREON [Suspect]
     Active Substance: EXENATIDE
     Indication: Type 2 diabetes mellitus
     Dosage: 2.0MG UNKNOWN
     Route: 058
     Dates: start: 20200512
  2. BYDUREON [Suspect]
     Active Substance: EXENATIDE
     Indication: Type 2 diabetes mellitus
     Dosage: 2.0MG UNKNOWN
     Route: 058
     Dates: start: 20211222
  3. BYDUREON [Suspect]
     Active Substance: EXENATIDE
     Indication: Type 2 diabetes mellitus
     Dosage: 2.0MG UNKNOWN
     Route: 058

REACTIONS (4)
  - Hyperglycaemia [Not Recovered/Not Resolved]
  - Product dose omission issue [Unknown]
  - Device defective [Unknown]
  - Device malfunction [Unknown]

NARRATIVE: CASE EVENT DATE: 20211220
